FAERS Safety Report 7288191-9 (Version None)
Quarter: 2011Q1

REPORT INFORMATION
  Report Type: 
  Country: None (occurrence: None)
  Receive Date: 20110208
  Receipt Date: 20110208
  Transmission Date: 20110831
  Serious: Yes (Hospitalization)
  Sender: FDA-Public Use
  Company Number: None

PATIENT
  Sex: Female
  Weight: 32 kg

DRUGS (5)
  1. ONCASPAR [Suspect]
     Dosage: 5800 MG
     Dates: end: 20110114
  2. CYCLOPHOSPHAMIDE [Suspect]
     Dosage: 2380 MG
     Dates: end: 20101231
  3. CYTARABINE [Suspect]
     Dosage: 1420 MG
     Dates: end: 20110111
  4. METHOTREXATE [Suspect]
     Dosage: 48 MG
     Dates: end: 20101217
  5. VINCRISTINE SULFATE [Suspect]
     Dosage: 7 MG
     Dates: end: 20110121

REACTIONS (2)
  - DEEP VEIN THROMBOSIS [None]
  - VENOUS STENOSIS [None]
